FAERS Safety Report 6708617-6 (Version None)
Quarter: 2010Q2

REPORT INFORMATION
  Report Type: 
  Country: None (occurrence: None)
  Receive Date: 20100503
  Receipt Date: 20100322
  Transmission Date: 20101027
  Serious: Yes (Death, Hospitalization, Other)
  Sender: FDA-Public Use
  Company Number: US-BAXTER-2008BH005139

PATIENT
  Age: 55 Year
  Sex: Male
  Weight: 113 kg

DRUGS (53)
  1. HEPARIN SODIUM INJECTION [Suspect]
     Indication: PROPHYLAXIS
     Route: 033
     Dates: start: 20050601, end: 20080213
  2. HEPARIN SODIUM INJECTION [Suspect]
     Indication: ANTICOAGULANT THERAPY
     Route: 033
     Dates: start: 20050601, end: 20080213
  3. HEPARIN SODIUM INJECTION [Suspect]
     Route: 033
     Dates: start: 20050601, end: 20080213
  4. HEPARIN SODIUM INJECTION [Suspect]
     Route: 033
     Dates: start: 20050601, end: 20080213
  5. HEPARIN SODIUM INJECTION [Suspect]
     Route: 033
     Dates: start: 20050601, end: 20080213
  6. HEPARIN SODIUM INJECTION [Suspect]
     Route: 033
     Dates: start: 20050601, end: 20080213
  7. HEPARIN SODIUM INJECTION [Suspect]
     Route: 033
     Dates: start: 20050601, end: 20080213
  8. HEPARIN SODIUM INJECTION [Suspect]
     Route: 033
     Dates: start: 20050601, end: 20080213
  9. HEPARIN SODIUM INJECTION [Suspect]
     Route: 033
     Dates: start: 20050601, end: 20080213
  10. HEPARIN SODIUM INJECTION [Suspect]
     Route: 033
     Dates: start: 20050601, end: 20080213
  11. HEPARIN SODIUM INJECTION [Suspect]
     Route: 042
     Dates: start: 20080201
  12. HEPARIN SODIUM INJECTION [Suspect]
     Route: 042
     Dates: start: 20080201
  13. HEPARIN SODIUM INJECTION [Suspect]
     Route: 033
     Dates: start: 20050601, end: 20080213
  14. HEPARIN SODIUM INJECTION [Suspect]
     Route: 033
     Dates: start: 20050601, end: 20080213
  15. HEPARIN SODIUM INJECTION [Suspect]
     Route: 033
     Dates: start: 20050601, end: 20080213
  16. HEPARIN SODIUM INJECTION [Suspect]
     Route: 033
     Dates: start: 20050601, end: 20080213
  17. HEPARIN SODIUM INJECTION [Suspect]
     Route: 033
     Dates: start: 20050601, end: 20080213
  18. HEPARIN SODIUM INJECTION [Suspect]
     Route: 033
     Dates: start: 20050601, end: 20080213
  19. HEPARIN SODIUM INJECTION [Suspect]
     Route: 033
     Dates: start: 20070918, end: 20080212
  20. HEPARIN SODIUM INJECTION [Suspect]
     Route: 033
     Dates: start: 20070918, end: 20080212
  21. HEPARIN SODIUM INJECTION [Suspect]
     Route: 033
     Dates: start: 20070918, end: 20080212
  22. HEPARIN SODIUM INJECTION [Suspect]
     Route: 033
     Dates: start: 20070918, end: 20080212
  23. HEPARIN SODIUM INJECTION [Suspect]
     Route: 033
     Dates: start: 20070918, end: 20080212
  24. HEPARIN SODIUM INJECTION [Suspect]
     Route: 033
     Dates: start: 20070918, end: 20080212
  25. HEPARIN SODIUM INJECTION [Suspect]
     Route: 033
     Dates: start: 20070918, end: 20080212
  26. HEPARIN SODIUM INJECTION [Suspect]
     Route: 033
     Dates: start: 20070918, end: 20080212
  27. HEPARIN SODIUM INJECTION [Suspect]
     Route: 033
     Dates: start: 20070918, end: 20080212
  28. HEPARIN SODIUM INJECTION [Suspect]
     Route: 033
     Dates: start: 20070918, end: 20080212
  29. HEPARIN SODIUM INJECTION [Suspect]
     Route: 033
     Dates: start: 20070918, end: 20080212
  30. HEPARIN SODIUM INJECTION [Suspect]
     Route: 033
     Dates: start: 20070918, end: 20080212
  31. HEPARIN SODIUM INJECTION [Suspect]
     Route: 033
     Dates: start: 20070918, end: 20080212
  32. HEPARIN SODIUM INJECTION [Suspect]
     Route: 033
     Dates: start: 20070918, end: 20080212
  33. HEPARIN SODIUM INJECTION [Suspect]
     Route: 033
     Dates: start: 20070918, end: 20080212
  34. HEPARIN SODIUM INJECTION [Suspect]
     Route: 033
     Dates: start: 20070918, end: 20080212
  35. HEPARIN SODIUM INJECTION [Suspect]
     Route: 033
     Dates: start: 20070918, end: 20080212
  36. HEPARIN SODIUM INJECTION [Suspect]
     Route: 033
     Dates: start: 20070918, end: 20080212
  37. HEPARIN SODIUM INJECTION [Suspect]
     Route: 033
     Dates: start: 20070923
  38. HEPARIN SODIUM INJECTION [Suspect]
     Route: 033
     Dates: start: 20070923
  39. HEPARIN SODIUM INJECTION [Suspect]
     Route: 065
     Dates: start: 20080213
  40. HEPARIN SODIUM INJECTION [Suspect]
     Route: 065
     Dates: start: 20080213
  41. HEPARIN SODIUM INJECTION [Suspect]
     Route: 065
     Dates: start: 20071115
  42. HEPARIN SODIUM INJECTION [Suspect]
     Route: 065
     Dates: start: 20071115
  43. IRON [Concomitant]
     Indication: DRUG USE FOR UNKNOWN INDICATION
     Route: 048
  44. COREG [Concomitant]
     Indication: DRUG USE FOR UNKNOWN INDICATION
     Route: 048
  45. FOSRENOL [Concomitant]
     Indication: DRUG USE FOR UNKNOWN INDICATION
     Route: 065
  46. HUMULIN N [Concomitant]
     Indication: DIABETES MELLITUS
     Route: 058
  47. EPOGEN [Concomitant]
     Indication: DRUG USE FOR UNKNOWN INDICATION
     Route: 058
  48. ESOMEPRAZOLE [Concomitant]
     Indication: DRUG USE FOR UNKNOWN INDICATION
     Route: 048
  49. PREGABALIN [Concomitant]
     Indication: DRUG USE FOR UNKNOWN INDICATION
     Route: 048
  50. CARAFATE [Concomitant]
     Indication: DRUG USE FOR UNKNOWN INDICATION
     Route: 065
  51. LISINOPRIL [Concomitant]
     Indication: DRUG USE FOR UNKNOWN INDICATION
     Route: 048
  52. DIATX [Concomitant]
     Indication: DRUG USE FOR UNKNOWN INDICATION
     Route: 048
  53. HECTOROL [Concomitant]
     Indication: DRUG USE FOR UNKNOWN INDICATION
     Route: 048

REACTIONS (31)
  - ASTHENIA [None]
  - BACILLUS INFECTION [None]
  - BACK PAIN [None]
  - BACTERIAL INFECTION [None]
  - CARDIAC ARREST [None]
  - CHILLS [None]
  - CONDITION AGGRAVATED [None]
  - COUGH [None]
  - DIARRHOEA [None]
  - DIZZINESS [None]
  - DRUG EFFECT DECREASED [None]
  - DYSPNOEA [None]
  - GASTROINTESTINAL HAEMORRHAGE [None]
  - HAEMATEMESIS [None]
  - HYPERHIDROSIS [None]
  - HYPOKALAEMIA [None]
  - HYPOMAGNESAEMIA [None]
  - HYPOTENSION [None]
  - MALAISE [None]
  - MEDICAL DEVICE COMPLICATION [None]
  - NAUSEA [None]
  - OEDEMA PERIPHERAL [None]
  - OESOPHAGITIS ULCERATIVE [None]
  - PALLOR [None]
  - PERITONITIS [None]
  - PRODUCT QUALITY ISSUE [None]
  - PYREXIA [None]
  - SEPTIC SHOCK [None]
  - THIRST [None]
  - VOMITING [None]
  - WHEEZING [None]
